FAERS Safety Report 4905962-1 (Version None)
Quarter: 2006Q1

REPORT INFORMATION
  Report Type: 
  Country: None (occurrence: None)
  Receive Date: 20060206
  Receipt Date: 20060124
  Transmission Date: 20060701
  Serious: Yes (Other)
  Sender: FDA-Public Use
  Company Number: 2006012779

PATIENT
  Age: 79 Year
  Sex: Female

DRUGS (11)
  1. CELEBREX [Suspect]
     Indication: ARTHRALGIA
     Dosage: 200 MG (200 MG, DAILY INTERVAL:  EVERY DAY)
     Dates: start: 20050101
  2. VITAMIN A (NATURAL) CAP [Concomitant]
  3. VITAMIN E [Concomitant]
  4. CALCIUM WITH VITAMIN D [Concomitant]
  5. PEPCID AC [Concomitant]
  6. ALL OTHER THERAPEUTIC PRODUCTS [Concomitant]
  7. SINUTAB SINUS + ALLERGY [Concomitant]
  8. VITAMIN C (VITAMIN C) [Concomitant]
  9. OCUVITE         (ASCORBIC ACID, RETINOL, TOCOPHEROL) [Concomitant]
  10. VITAMINS (VITAMINS) [Concomitant]
  11. CRESTOR [Concomitant]

REACTIONS (9)
  - ARTHRITIS [None]
  - BLOOD PRESSURE FLUCTUATION [None]
  - ECONOMIC PROBLEM [None]
  - EYE HAEMORRHAGE [None]
  - HAIR GROWTH ABNORMAL [None]
  - INCORRECT DOSE ADMINISTERED [None]
  - PAIN [None]
  - TREATMENT NONCOMPLIANCE [None]
  - WALKING AID USER [None]
